FAERS Safety Report 12527950 (Version 1)
Quarter: 2016Q3

REPORT INFORMATION
  Report Type: Report from Study
  Country: CA (occurrence: CA)
  Receive Date: 20160705
  Receipt Date: 20160705
  Transmission Date: 20161109
  Serious: Yes (Other)
  Sender: FDA-Public Use
  Company Number: CA-AMGEN-CANSL2016084068

PATIENT
  Age: 67 Year
  Sex: Female

DRUGS (5)
  1. LORAZEPAM. [Concomitant]
     Active Substance: LORAZEPAM
     Indication: SLEEP DISORDER
     Dosage: HS, AS NECESSARY
  2. PROLIA [Suspect]
     Active Substance: DENOSUMAB
     Indication: OSTEOPOROSIS
     Dosage: UNK
     Route: 065
     Dates: start: 20150621
  3. PANTOPRAZOLE [Concomitant]
     Active Substance: PANTOPRAZOLE SODIUM
  4. TELMISARTAN. [Concomitant]
     Active Substance: TELMISARTAN
  5. ATORVASTATIN [Concomitant]
     Active Substance: ATORVASTATIN

REACTIONS (7)
  - Chest pain [Unknown]
  - Urinary tract infection [Unknown]
  - Pyrexia [Unknown]
  - Arthritis [Unknown]
  - Weight decreased [Unknown]
  - Diabetes mellitus [Unknown]
  - Muscle spasms [Unknown]

NARRATIVE: CASE EVENT DATE: 201601
